FAERS Safety Report 10914565 (Version 2)
Quarter: 2015Q1

REPORT INFORMATION
  Report Type: Spontaneous
  Country: CH (occurrence: CH)
  Receive Date: 20150313
  Receipt Date: 20150313
  Transmission Date: 20150721
  Serious: Yes (Hospitalization)
  Sender: FDA-Public Use
  Company Number: CH-MALLINCKRODT-T201501614

PATIENT
  Age: 27 Year
  Sex: Female

DRUGS (15)
  1. OFIRMEV [Suspect]
     Active Substance: ACETAMINOPHEN
     Indication: ABDOMINAL PAIN
     Dosage: 1 G, QID
     Route: 041
     Dates: start: 20150124, end: 20150128
  2. URISPAS [Concomitant]
     Active Substance: FLAVOXATE HYDROCHLORIDE
     Dosage: UNK
     Dates: start: 20150125, end: 20150129
  3. TOPAMAX [Suspect]
     Active Substance: TOPIRAMATE
     Indication: EPILEPSY CONGENITAL
     Dosage: 25 MG, BID
     Route: 048
     Dates: start: 2007, end: 20150129
  4. METAMIZOLE [Suspect]
     Active Substance: METAMIZOLE
     Indication: ABDOMINAL PAIN
     Dosage: 500 MG, QID
     Route: 041
     Dates: start: 20150124, end: 20150128
  5. CIPROFLOXACINE [Suspect]
     Active Substance: CIPROFLOXACIN
     Indication: PYELONEPHRITIS ACUTE
     Dosage: 400 MG, BID
     Route: 041
     Dates: start: 20150127, end: 20150204
  6. CIPROFLOXACINE [Suspect]
     Active Substance: CIPROFLOXACIN
     Dosage: 500 MG, BID
     Route: 048
     Dates: start: 20150210
  7. CERAZETTE [Concomitant]
     Active Substance: DESOGESTREL
     Dosage: UNK
     Dates: end: 20150129
  8. ZOFRAN [Concomitant]
     Active Substance: ONDANSETRON HYDROCHLORIDE
     Dosage: UNK
     Dates: start: 20150125
  9. PRIMPERAN [Concomitant]
     Active Substance: METOCLOPRAMIDE HYDROCHLORIDE
     Dosage: UNK
     Dates: start: 20150125
  10. BUSCOPAN [Concomitant]
     Active Substance: BUTYLSCOPOLAMINE BROMIDE
     Dosage: UNK
     Dates: start: 20150125, end: 20150129
  11. MORPHINE [Concomitant]
     Active Substance: MORPHINE
     Dosage: UNK
     Dates: start: 20150125
  12. ROCEPHINE [Suspect]
     Active Substance: CEFTRIAXONE SODIUM
     Indication: PYELONEPHRITIS ACUTE
     Dosage: 2 G, QD
     Route: 041
     Dates: start: 20150124, end: 20150127
  13. ROCEPHINE [Suspect]
     Active Substance: CEFTRIAXONE SODIUM
     Dosage: 2 G, UNK
     Route: 041
     Dates: start: 20150204, end: 20150210
  14. LAMOTRIN [Concomitant]
  15. MOTILIUM [Concomitant]
     Active Substance: DOMPERIDONE
     Dosage: UNK
     Dates: start: 20150127, end: 20150129

REACTIONS (5)
  - Nephrolithiasis [Unknown]
  - Pancreatitis [Recovering/Resolving]
  - Liver injury [Recovering/Resolving]
  - Prescribed overdose [Unknown]
  - Drug interaction [Unknown]

NARRATIVE: CASE EVENT DATE: 20150128
